FAERS Safety Report 5791797-7 (Version None)
Quarter: 2008Q2

REPORT INFORMATION
  Report Type: 
  Country: None (occurrence: None)
  Receive Date: 20080618
  Receipt Date: 20080422
  Transmission Date: 20081010
  Serious: Yes (Hospitalization)
  Sender: FDA-Public Use
  Company Number: 200811848US

PATIENT
  Age: 77 Year
  Sex: Male
  Weight: 79.4 kg

DRUGS (16)
  1. LANTUS [Suspect]
     Indication: TYPE 2 DIABETES MELLITUS
     Dosage: 24 U HS SC
     Route: 058
     Dates: start: 20060101
  2. VITAMIN-B-KOMPLEX STANDARD (VIT B COMPLEX) [Concomitant]
  3. WARFARIN SODIUM [Concomitant]
  4. DIGOXIN [Concomitant]
  5. METOPROLOL SUCCINATE [Concomitant]
  6. ATORVASTATIN CALCIUM [Concomitant]
  7. FUROSEMIDE [Concomitant]
  8. LISINOPRIL [Concomitant]
  9. POTASSIUM CHLORIDE (KLOR-CON) [Concomitant]
  10. GLYBURIDE [Concomitant]
  11. TRAMADOL HCL [Concomitant]
  12. ACETYLSALICYLIC ACID SRT [Concomitant]
  13. OMEPRAZOLE [Concomitant]
  14. ALLOPURINOL [Concomitant]
  15. NOVOLOG [Concomitant]
  16. METOLAZONE [Concomitant]

REACTIONS (1)
  - BLOOD GLUCOSE INCREASED [None]
